FAERS Safety Report 4907772-8 (Version None)
Quarter: 2006Q1

REPORT INFORMATION
  Report Type: 
  Country: None (occurrence: None)
  Receive Date: 20060208
  Receipt Date: 20060208
  Transmission Date: 20060701
  Serious: Yes (Hospitalization)
  Sender: FDA-Public Use
  Company Number: None

PATIENT
  Age: 87 Year
  Sex: Male

DRUGS (7)
  1. HYDROCHLOROTHIAZIDE [Suspect]
     Indication: HYPERTENSION
     Dosage: 12.5 MG QD
     Dates: start: 20041001
  2. DOCUSATE [Concomitant]
  3. TEMAZEPAM [Concomitant]
  4. FERROUS SULFATE TAB [Concomitant]
  5. TERAZOSIN [Concomitant]
  6. ASPIRIN [Concomitant]
  7. ACETAMINOPHEN [Concomitant]

REACTIONS (1)
  - HYPOTENSION [None]
